FAERS Safety Report 4375714-2 (Version None)
Quarter: 2004Q2

REPORT INFORMATION
  Report Type: 
  Country: None (occurrence: None)
  Receive Date: 20040608
  Receipt Date: 20031223
  Transmission Date: 20050107
  Serious: Yes (Other)
  Sender: FDA-Public Use
  Company Number: 200314804BCC

PATIENT
  Age: 81 Year
  Sex: Female
  Weight: 40.8237 kg

DRUGS (5)
  1. ALEVE [Suspect]
     Indication: MUSCLE RUPTURE
     Dosage: 220 MG, BID, ORAL
     Route: 048
     Dates: start: 20031101, end: 20031201
  2. MULTI-VITAMIN [Concomitant]
  3. VITAMIN A [Concomitant]
  4. VITAMIN B COMPLEX CAP [Concomitant]
  5. VITAMIN C [Concomitant]

REACTIONS (2)
  - HAEMATOCHEZIA [None]
  - RECTAL HAEMORRHAGE [None]
